FAERS Safety Report 20323007 (Version 1)
Quarter: 2022Q1

REPORT INFORMATION
  Report Type: Spontaneous
  Country: None (occurrence: US)
  Receive Date: 20220111
  Receipt Date: 20220111
  Transmission Date: 20220423
  Serious: Yes (Hospitalization)
  Sender: FDA-Public Use
  Company Number: US-Stason Pharmaceuticals, Inc.-2123801

PATIENT
  Age: 5 Year
  Sex: Male
  Weight: 23.80 kg

DRUGS (1)
  1. MERCAPTOPURINE [Suspect]
     Active Substance: MERCAPTOPURINE

REACTIONS (1)
  - Pyrexia [Not Recovered/Not Resolved]

NARRATIVE: CASE EVENT DATE: 20211207
